FAERS Safety Report 19645065 (Version 1)
Quarter: 2021Q3

REPORT INFORMATION
  Report Type: Spontaneous
  Country: GB (occurrence: GB)
  Receive Date: 20210802
  Receipt Date: 20210802
  Transmission Date: 20211014
  Serious: No
  Sender: FDA-Public Use
  Company Number: GB-ALKEM LABORATORIES LIMITED-GB-ALKEM-2021-01617

PATIENT

DRUGS (2)
  1. SARS?COV?2 VIRUS [Concomitant]
     Active Substance: SARS-COV-2
     Indication: COVID-19 IMMUNISATION
     Dosage: UNK
     Route: 065
  2. CEFUROXIME AXETIL. [Suspect]
     Active Substance: CEFUROXIME AXETIL
     Indication: PRODUCT USED FOR UNKNOWN INDICATION
     Dosage: 750 MILLIGRAM, TID, (2 DOSES POST?OPERATIVE, 8 HOURS APART)
     Route: 042
     Dates: start: 20210310, end: 20210311

REACTIONS (1)
  - Drug eruption [Recovered/Resolved]

NARRATIVE: CASE EVENT DATE: 20210310
